APPROVED DRUG PRODUCT: FLUPHENAZINE DECANOATE
Active Ingredient: FLUPHENAZINE DECANOATE
Strength: 25MG/ML
Dosage Form/Route: INJECTABLE;INJECTION
Application: A071413 | Product #001 | TE Code: AO
Applicant: FRESENIUS KABI USA LLC
Approved: Jul 14, 1987 | RLD: No | RS: Yes | Type: RX